FAERS Safety Report 8247544-2 (Version None)
Quarter: 2012Q1

REPORT INFORMATION
  Report Type: 
  Country: None (occurrence: None)
  Receive Date: 20120330
  Receipt Date: 20120316
  Transmission Date: 20120608
  Serious: Yes (Other)
  Sender: FDA-Public Use
  Company Number: FR-CELGENEUS-056-21880-11101742

PATIENT
  Sex: Male
  Weight: 89 kg

DRUGS (41)
  1. RITUXIMAB [Suspect]
     Dosage: 750 MILLIGRAM
     Route: 041
     Dates: start: 20110315, end: 20110315
  2. VINCRISTINE [Suspect]
     Dosage: 2 MILLIGRAM
     Route: 041
     Dates: start: 20110222, end: 20110222
  3. VINCRISTINE [Suspect]
     Dosage: 2 MILLIGRAM
     Route: 041
     Dates: start: 20110517, end: 20110517
  4. DOXORUBICIN HCL [Suspect]
     Dosage: 100 MILLIGRAM
     Route: 041
     Dates: start: 20110315, end: 20110315
  5. PEGFILGRASTIM [Concomitant]
     Dosage: 6 MILLIGRAM
     Route: 065
     Dates: start: 20110318, end: 20110318
  6. RITUXIMAB [Suspect]
     Indication: B-CELL LYMPHOMA
     Dosage: 750 MILLIGRAM
     Route: 041
     Dates: start: 20110201, end: 20110201
  7. RITUXIMAB [Suspect]
     Dosage: 750 MILLIGRAM
     Route: 041
     Dates: start: 20110222, end: 20110222
  8. RITUXIMAB [Suspect]
     Dosage: 750 MILLIGRAM
     Route: 041
     Dates: start: 20110426, end: 20110426
  9. RITUXIMAB [Suspect]
     Dosage: 750 MILLIGRAM
     Route: 041
     Dates: start: 20110517, end: 20110517
  10. RITUXIMAB [Suspect]
     Dosage: 750 MILLIGRAM
     Route: 041
     Dates: start: 20110629, end: 20110629
  11. PREDNISOLONE [Suspect]
     Indication: B-CELL LYMPHOMA
     Dosage: 400 MILLIGRAM
     Route: 048
     Dates: start: 20110201
  12. CYCLOPHOSPHAMIDE [Suspect]
     Dosage: 1500 MILLIGRAM
     Route: 041
     Dates: start: 20110222, end: 20110222
  13. CYCLOPHOSPHAMIDE [Suspect]
     Dosage: 1500 MILLIGRAM
     Route: 041
     Dates: start: 20110315, end: 20110315
  14. CYCLOPHOSPHAMIDE [Suspect]
     Dosage: 1500 MILLIGRAM
     Route: 041
     Dates: start: 20110405, end: 20110405
  15. PEGFILGRASTIM [Concomitant]
     Dosage: 6 MILLIGRAM
     Route: 065
     Dates: start: 20110225, end: 20110225
  16. CYCLOPHOSPHAMIDE [Suspect]
     Dosage: 1500 MILLIGRAM
     Route: 041
     Dates: start: 20110517, end: 20110517
  17. PEGFILGRASTIM [Concomitant]
     Dosage: 6 MILLIGRAM
     Route: 065
     Dates: start: 20110204, end: 20110204
  18. NEXIUM [Concomitant]
     Dosage: 40 MILLIGRAM
     Route: 065
     Dates: start: 20110202, end: 20110809
  19. SERETID [Concomitant]
     Indication: ASTHMA
     Route: 065
     Dates: start: 20110520, end: 20110809
  20. RITUXIMAB [Suspect]
     Dosage: 750 MILLIGRAM
     Route: 041
     Dates: start: 20110405, end: 20110405
  21. VINCRISTINE [Suspect]
     Dosage: 2 MILLIGRAM
     Route: 041
     Dates: start: 20110405, end: 20110405
  22. CYCLOPHOSPHAMIDE [Suspect]
     Indication: B-CELL LYMPHOMA
     Dosage: 1500 MILLIGRAM
     Route: 041
     Dates: start: 20110201, end: 20110201
  23. DOXORUBICIN HCL [Suspect]
     Dosage: 100 MILLIGRAM
     Route: 041
     Dates: start: 20110517, end: 20110517
  24. VALACYCLOVIR HYDROCHLORIDE [Concomitant]
     Dosage: 1000 MILLIGRAM
     Route: 065
     Dates: start: 20110131, end: 20110811
  25. REVLIMID [Suspect]
     Indication: B-CELL LYMPHOMA
     Dosage: 25 MILLIGRAM
     Route: 048
     Dates: start: 20110201, end: 20110214
  26. VINCRISTINE [Suspect]
     Indication: B-CELL LYMPHOMA
     Dosage: 2 MILLIGRAM
     Route: 041
     Dates: start: 20110201, end: 20110201
  27. CYCLOPHOSPHAMIDE [Suspect]
     Dosage: 1500 MILLIGRAM
     Route: 041
     Dates: start: 20110426, end: 20110426
  28. DOXORUBICIN HCL [Suspect]
     Indication: B-CELL LYMPHOMA
     Dosage: 100 MILLIGRAM
     Route: 041
     Dates: start: 20110201, end: 20110201
  29. PEGFILGRASTIM [Concomitant]
     Route: 065
     Dates: start: 20110408, end: 20110408
  30. PEGFILGRASTIM [Concomitant]
     Route: 065
     Dates: start: 20110520, end: 20110520
  31. METHYLPREDNISOLONE [Suspect]
     Indication: B-CELL LYMPHOMA
     Route: 041
     Dates: start: 20110201, end: 20110517
  32. VINCRISTINE [Suspect]
     Dosage: 2 MILLIGRAM
     Route: 041
     Dates: start: 20110426, end: 20110426
  33. PREDNISOLONE [Suspect]
     Route: 048
     Dates: start: 20110517
  34. DOXORUBICIN HCL [Suspect]
     Dosage: 100 MILLIGRAM
     Route: 041
     Dates: start: 20110222, end: 20110222
  35. RITUXIMAB [Suspect]
     Dosage: 750 MILLIGRAM
     Route: 041
     Dates: start: 20110607, end: 20110607
  36. DOXORUBICIN HCL [Suspect]
     Dosage: 100 MILLIGRAM
     Route: 041
     Dates: start: 20110405, end: 20110405
  37. DOXORUBICIN HCL [Suspect]
     Dosage: 100 MILLIGRAM
     Route: 041
     Dates: start: 20110426, end: 20110426
  38. PEGFILGRASTIM [Concomitant]
     Route: 065
     Dates: start: 20110502, end: 20110502
  39. REVLIMID [Suspect]
     Dosage: 25 MILLIGRAM
     Route: 048
     Dates: start: 20110517, end: 20110530
  40. RITUXIMAB [Suspect]
     Route: 041
     Dates: end: 20110901
  41. VINCRISTINE [Suspect]
     Dosage: 2 MILLIGRAM
     Route: 041
     Dates: start: 20110315, end: 20110315

REACTIONS (1)
  - TONSIL CANCER [None]
